FAERS Safety Report 14991412 (Version 4)
Quarter: 2018Q3

REPORT INFORMATION
  Report Type: Spontaneous
  Country: BR (occurrence: BR)
  Receive Date: 20180608
  Receipt Date: 20180713
  Transmission Date: 20181010
  Serious: Yes (Life-Threatening, Hospitalization, Disabling, Other)
  Sender: FDA-Public Use
  Company Number: BR-GLAXOSMITHKLINE-BR2018GSK102438

PATIENT
  Age: 37 Year
  Sex: Male
  Weight: 65 kg

DRUGS (1)
  1. NEOTIGASON [Suspect]
     Active Substance: ACITRETIN
     Indication: KERATOSIS FOLLICULAR
     Dosage: 6 DF, 1D, IN THE LUNCH OR DINNER (10 MG,6 IN 1 D)
     Route: 048
     Dates: start: 2003, end: 2008

REACTIONS (13)
  - Pain in extremity [Not Recovered/Not Resolved]
  - Inflammation [Not Recovered/Not Resolved]
  - Gait disturbance [Not Recovered/Not Resolved]
  - Product availability issue [Unknown]
  - Weight decreased [Not Recovered/Not Resolved]
  - Localised infection [Not Recovered/Not Resolved]
  - Urinary retention [Unknown]
  - Skin fissures [Not Recovered/Not Resolved]
  - Pyrexia [Not Recovered/Not Resolved]
  - Keratosis follicular [Not Recovered/Not Resolved]
  - Eating disorder [Not Recovered/Not Resolved]
  - Skin odour abnormal [Not Recovered/Not Resolved]
  - Suicidal ideation [Not Recovered/Not Resolved]
